FAERS Safety Report 8429710-6 (Version None)
Quarter: 2012Q2

REPORT INFORMATION
  Report Type: 
  Country: None (occurrence: None)
  Receive Date: 20120612
  Receipt Date: 20120531
  Transmission Date: 20120825
  Serious: Yes (Hospitalization)
  Sender: FDA-Public Use
  Company Number: JP-ELI_LILLY_AND_COMPANY-JP201203005863

PATIENT
  Sex: Male
  Weight: 62 kg

DRUGS (15)
  1. LOXONIN [Concomitant]
     Dosage: UNK
     Dates: start: 20100927
  2. VITAMIN B12 [Concomitant]
     Dosage: UNK
     Route: 030
     Dates: start: 20100810
  3. VITAMIN B12 [Concomitant]
     Dosage: UNK
     Route: 048
     Dates: start: 20100901
  4. AMOBAN [Concomitant]
     Dosage: UNK
     Dates: start: 20100810
  5. OXINORM                            /00045603/ [Concomitant]
     Dosage: UNK
     Dates: start: 20100918
  6. AMLODIPINE [Concomitant]
     Dosage: UNK
     Dates: start: 20100924
  7. PANVITAN [Concomitant]
     Dosage: UNK
     Dates: start: 20100810
  8. KINEDAK [Concomitant]
     Dosage: UNK
     Dates: start: 20100917
  9. MORPHINE SULFATE [Concomitant]
     Dosage: UNK
     Dates: start: 20100917
  10. ALIMTA [Suspect]
     Indication: LUNG CARCINOMA CELL TYPE UNSPECIFIED STAGE IV
     Dosage: 800 MG, OTHER
     Route: 042
     Dates: start: 20100820, end: 20100910
  11. ACETAMINOPHEN [Concomitant]
     Dosage: UNK
     Dates: start: 20100924
  12. GARENOXACIN MESYLATE [Concomitant]
     Dosage: UNK
     Dates: start: 20100929
  13. ROHYPNOL [Concomitant]
     Dosage: UNK
     Dates: start: 20100827
  14. GABAPENTIN [Concomitant]
     Dosage: UNK
     Dates: start: 20100915
  15. PURSENNID [Concomitant]
     Dosage: UNK
     Dates: start: 20100918

REACTIONS (1)
  - LUNG DISORDER [None]
